FAERS Safety Report 9521944 (Version 1)
Quarter: 2013Q3

REPORT INFORMATION
  Report Type: Spontaneous
  Country: US (occurrence: None)
  Receive Date: 20130911
  Receipt Date: 20130911
  Transmission Date: 20140515
  Serious: No
  Sender: FDA-Public Use
  Company Number: AEUSA201200527

PATIENT
  Age: 62 Year
  Sex: Male
  Weight: 80.6 kg

DRUGS (11)
  1. GAMMAKED [Suspect]
     Indication: IMMUNE TOLERANCE INDUCTION
     Route: 042
     Dates: start: 20121105, end: 20121127
  2. CELLCEPT /01275102/ [Concomitant]
  3. PREDNISONE [Concomitant]
  4. VANCOMYCIN [Concomitant]
  5. MEROPENEM [Concomitant]
  6. ACYCLOVIR /00587302/ [Concomitant]
  7. COLACE [Concomitant]
  8. NEXIUM [Concomitant]
  9. FENTANYL [Concomitant]
  10. DOBUTAMINE [Concomitant]
  11. MIDAZOLAM [Concomitant]

REACTIONS (3)
  - Haemolysis [None]
  - Procedural complication [None]
  - Post procedural complication [None]
